FAERS Safety Report 26006886 (Version 1)
Quarter: 2025Q4

REPORT INFORMATION
  Report Type: Spontaneous
  Country: US (occurrence: US)
  Receive Date: 20251106
  Receipt Date: 20251106
  Transmission Date: 20260118
  Serious: No
  Sender: Harrow Health
  Company Number: US-HARROW-HAR-2025-US-01209

PATIENT
  Sex: Female

DRUGS (1)
  1. VEVYE [Suspect]
     Active Substance: CYCLOSPORINE
     Indication: Dry eye
     Dosage: ONE DROP TWICE A DAY
     Route: 047

REACTIONS (4)
  - Eye pain [Recovered/Resolved]
  - Ocular hyperaemia [Recovered/Resolved]
  - Dizziness [Unknown]
  - Vision blurred [Unknown]
